FAERS Safety Report 5708912-3 (Version None)
Quarter: 2008Q2

REPORT INFORMATION
  Report Type: 
  Country: None (occurrence: None)
  Receive Date: 20080416
  Receipt Date: 20080405
  Transmission Date: 20081010
  Serious: Yes (Hospitalization)
  Sender: FDA-Public Use
  Company Number: 2008S1005658

PATIENT
  Age: 41 Year
  Sex: Female

DRUGS (2)
  1. FENTANYL TRANSDERMAL SYSTEM [Suspect]
     Indication: BACK PAIN
     Dosage: 75 UG;EVERY HOUR; TRANSDERMAL
     Route: 062
     Dates: start: 20071226, end: 20071230
  2. HYDROCODONE BITARTRATE [Concomitant]

REACTIONS (9)
  - ASTHENIA [None]
  - CRYING [None]
  - DISEASE PROGRESSION [None]
  - DRUG EFFECT INCREASED [None]
  - EMOTIONAL DISORDER [None]
  - MALAISE [None]
  - MUSCLE SPASMS [None]
  - PHARMACEUTICAL PRODUCT COMPLAINT [None]
  - RESTLESSNESS [None]
